FAERS Safety Report 25264478 (Version 2)
Quarter: 2025Q2

REPORT INFORMATION
  Report Type: Spontaneous
  Country: JP (occurrence: JP)
  Receive Date: 20250502
  Receipt Date: 20250508
  Transmission Date: 20250717
  Serious: Yes (Other)
  Sender: JOHNSON AND JOHNSON
  Company Number: JP-JNJFOC-20250432765

PATIENT
  Age: 6 Decade
  Sex: Male

DRUGS (5)
  1. PALIPERIDONE PALMITATE [Suspect]
     Active Substance: PALIPERIDONE PALMITATE
     Indication: Schizophrenia
     Route: 030
     Dates: end: 202504
  2. PALIPERIDONE PALMITATE [Suspect]
     Active Substance: PALIPERIDONE PALMITATE
  3. PALIPERIDONE PALMITATE [Suspect]
     Active Substance: PALIPERIDONE PALMITATE
  4. RISPERDAL [Suspect]
     Active Substance: RISPERIDONE
     Indication: Schizophrenia
     Dosage: DOSE UNKNOWN
     Route: 048
     Dates: start: 202504, end: 202504
  5. ARIPIPRAZOLE HYDRATE [Concomitant]
     Indication: Schizophrenia
     Route: 030
     Dates: start: 202504

REACTIONS (3)
  - Extrapyramidal disorder [Unknown]
  - Schizophrenia [Unknown]
  - Overdose [Unknown]

NARRATIVE: CASE EVENT DATE: 20250401
